FAERS Safety Report 18621881 (Version 2)
Quarter: 2020Q4

REPORT INFORMATION
  Report Type: Spontaneous
  Country: JP (occurrence: JP)
  Receive Date: 20201216
  Receipt Date: 20201229
  Transmission Date: 20210114
  Serious: Yes (Death, Hospitalization, Other)
  Sender: FDA-Public Use
  Company Number: JP-AMGEN-JPNSP2020201982

PATIENT
  Sex: Female

DRUGS (1)
  1. EVENITY [Suspect]
     Active Substance: ROMOSOZUMAB-AQQG
     Indication: PRODUCT USED FOR UNKNOWN INDICATION
     Dosage: 210 MILLIGRAM
     Route: 058
     Dates: start: 20201125, end: 20201125

REACTIONS (4)
  - Unevaluable event [Unknown]
  - Fall [Unknown]
  - Fracture [Unknown]
  - Death [Fatal]

NARRATIVE: CASE EVENT DATE: 2020
